FAERS Safety Report 5375960-5 (Version None)
Quarter: 2007Q3

REPORT INFORMATION
  Report Type: 
  Country: None (occurrence: None)
  Receive Date: 20070702
  Receipt Date: 20070621
  Transmission Date: 20080115
  Serious: Yes (Other)
  Sender: FDA-Public Use
  Company Number: US-JNJFOC-20070605729

PATIENT
  Sex: Female
  Weight: 52.16 kg

DRUGS (6)
  1. FENTANYL TRANSDERMAL SYSTEM [Suspect]
     Route: 062
  2. FENTANYL TRANSDERMAL SYSTEM [Suspect]
     Indication: PAIN
     Route: 062
  3. DYAZIDE [Concomitant]
     Indication: BLOOD PRESSURE
     Route: 048
  4. ZONEGRAN [Concomitant]
     Indication: CONVULSION
     Route: 048
  5. AMBIEN [Concomitant]
     Indication: SLEEP DISORDER
     Dosage: AT NIGHT
     Route: 048
  6. KLONOPIN [Concomitant]
     Indication: CONVULSION
     Route: 048

REACTIONS (1)
  - POST PROCEDURAL COMPLICATION [None]
